FAERS Safety Report 21965074 (Version 2)
Quarter: 2023Q1

REPORT INFORMATION
  Report Type: Report from Study
  Country: US (occurrence: US)
  Receive Date: 20230207
  Receipt Date: 20230227
  Transmission Date: 20230417
  Serious: Yes (Hospitalization)
  Sender: FDA-Public Use
  Company Number: US-ABBVIE-4295666

PATIENT
  Age: 33 Year
  Sex: Male

DRUGS (4)
  1. SKYRIZI [Suspect]
     Active Substance: RISANKIZUMAB-RZAA
     Indication: Crohn^s disease
     Dosage: 2ND DOSE?WEEK 4
     Route: 042
     Dates: start: 2022
  2. SKYRIZI [Suspect]
     Active Substance: RISANKIZUMAB-RZAA
     Indication: Crohn^s disease
     Dosage: 1ST DOSE?WEEK 0
     Route: 042
     Dates: start: 2022
  3. SKYRIZI [Suspect]
     Active Substance: RISANKIZUMAB-RZAA
     Indication: Crohn^s disease
     Dosage: CARTRIDGE 360MG/2.4M?ON 12 WEEK
     Route: 042
     Dates: start: 20230113
  4. SKYRIZI [Suspect]
     Active Substance: RISANKIZUMAB-RZAA
     Indication: Crohn^s disease
     Dosage: 3RD DOSE
     Route: 042
     Dates: end: 20221215

REACTIONS (2)
  - Clostridium difficile infection [Recovered/Resolved]
  - Food poisoning [Recovered/Resolved]

NARRATIVE: CASE EVENT DATE: 20230123
